FAERS Safety Report 4981510-5 (Version None)
Quarter: 2006Q2

REPORT INFORMATION
  Report Type: 
  Country: None (occurrence: None)
  Receive Date: 20060424
  Receipt Date: 20051209
  Transmission Date: 20061013
  Serious: Yes (Death, Disabling, Other)
  Sender: FDA-Public Use
  Company Number: US-MERCK-0512USA01718

PATIENT
  Age: 64 Year
  Sex: Male
  Weight: 99 kg

DRUGS (2)
  1. VIOXX [Suspect]
     Indication: BACK PAIN
     Route: 048
     Dates: start: 20010501, end: 20020601
  2. VIOXX [Suspect]
     Indication: MYALGIA
     Route: 048
     Dates: start: 20010501, end: 20020601

REACTIONS (15)
  - ARTERIOSCLEROSIS CORONARY ARTERY [None]
  - BACK PAIN [None]
  - CARDIAC FAILURE [None]
  - CARDIAC VALVE DISEASE [None]
  - COUGH [None]
  - DYSPNOEA EXERTIONAL [None]
  - FALL [None]
  - FATIGUE [None]
  - HYPERTENSION [None]
  - MALAISE [None]
  - MYOCARDIAL INFARCTION [None]
  - PAIN IN EXTREMITY [None]
  - PLEURITIC PAIN [None]
  - SLEEP APNOEA SYNDROME [None]
  - THROMBOSIS [None]
